FAERS Safety Report 9518899 (Version 1)
Quarter: 2013Q1

REPORT INFORMATION
  Report Type: Spontaneous
  Country: US (occurrence: None)
  Receive Date: 20130305
  Receipt Date: 20130305
  Transmission Date: 20140127
  Serious: Yes (Other)
  Sender: FDA-Public Use
  Company Number: 163-21880-12100174

PATIENT
  Age: 68 Year
  Sex: Male
  Weight: 107.96 kg

DRUGS (2)
  1. REVLIMID (LENALIDOMIDE) (25 MILLIGRAM, CAPSULES) [Suspect]
     Indication: PLASMA CELL MYELOMA
     Dosage: 21 IN 28 D
     Route: 048
     Dates: start: 20100212, end: 2011
  2. ROSEBUD SALVE (PARAFFIN) (UNKNOWN) [Concomitant]

REACTIONS (1)
  - Inappropriate schedule of drug administration [None]
